FAERS Safety Report 5739445-6 (Version None)
Quarter: 2008Q2

REPORT INFORMATION
  Report Type: 
  Country: None (occurrence: None)
  Receive Date: 20080515
  Receipt Date: 20080505
  Transmission Date: 20081010
  Serious: Yes (Hospitalization, Disabling, Other)
  Sender: FDA-Public Use
  Company Number: US-PFIZER INC-2008039515

PATIENT
  Sex: Male

DRUGS (1)
  1. AMLODIPINE [Suspect]

REACTIONS (7)
  - COCHLEA IMPLANT [None]
  - DEAFNESS [None]
  - DEVICE RELATED INFECTION [None]
  - EMOTIONAL DISTRESS [None]
  - MIGRAINE [None]
  - PAIN [None]
  - TINNITUS [None]
